FAERS Safety Report 4285686-7 (Version None)
Quarter: 2004Q1

REPORT INFORMATION
  Report Type: 
  Country: None (occurrence: None)
  Receive Date: 20040203
  Receipt Date: 20040114
  Transmission Date: 20041129
  Serious: Yes (Other)
  Sender: FDA-Public Use
  Company Number: HQWYE472119JAN04

PATIENT
  Sex: Male

DRUGS (1)
  1. CONCOR (BISOPROLOL, TABLET) [Suspect]
     Dosage: 10 MG     SEVERAL YEARS

REACTIONS (4)
  - DIAPHRAGMATIC PARALYSIS [None]
  - LUNG DISORDER [None]
  - ORTHOPNOEA [None]
  - PARESIS [None]
